FAERS Safety Report 24235210 (Version 1)
Quarter: 2024Q3

REPORT INFORMATION
  Report Type: Spontaneous
  Country: CN (occurrence: CN)
  Receive Date: 20240821
  Receipt Date: 20240821
  Transmission Date: 20241017
  Serious: Yes (Other)
  Sender: BRISTOL MYERS SQUIBB
  Company Number: CN-BRISTOL-MYERS SQUIBB COMPANY-2024-129395

PATIENT
  Age: 48 Year
  Sex: Female
  Weight: 52.6 kg

DRUGS (3)
  1. VIDAZA [Suspect]
     Active Substance: AZACITIDINE
     Indication: Myelodysplastic syndrome
     Dosage: DOSE: 100 MG/D;75MG/M2.     ?FREQ: DRUG USE-TIMES: 1; DRUG USE-DAYS:1; D1-7
     Route: 058
     Dates: start: 20240801, end: 20240807
  2. REBLOZYL [Suspect]
     Active Substance: LUSPATERCEPT-AAMT
     Indication: Myelodysplastic syndrome
     Dosage: REBLOZYL 1MG/KG, ACTUAL DOSAGE 50MG,?SUBCUTANEOUS INJECTION, D8
     Route: 058
     Dates: start: 20240801, end: 20240807
  3. STERILISED WATER FOR INJECTION [Concomitant]
     Indication: Product used for unknown indication
     Dates: start: 20240801, end: 20240807

REACTIONS (1)
  - White blood cell count decreased [Not Recovered/Not Resolved]

NARRATIVE: CASE EVENT DATE: 20240804
